FAERS Safety Report 22655827 (Version 4)
Quarter: 2024Q1

REPORT INFORMATION
  Report Type: Spontaneous
  Country: US (occurrence: US)
  Receive Date: 20230629
  Receipt Date: 20240328
  Transmission Date: 20240410
  Serious: Yes (Disabling)
  Sender: FDA-Public Use
  Company Number: US-ABBVIE-5309326

PATIENT
  Age: 43 Year
  Sex: Male

DRUGS (2)
  1. DURYSTA [Suspect]
     Active Substance: BIMATOPROST
     Indication: Product used for unknown indication
     Dosage: TIME INTERVAL: AS NECESSARY: IN RIGHT EYE, FORM STRENGTH: 0.01 MILLIGRAM
     Route: 050
     Dates: start: 20230502, end: 20230627
  2. DURYSTA [Suspect]
     Active Substance: BIMATOPROST
     Dosage: TIME INTERVAL: AS NECESSARY: IN LEFT EYE, FORM STRENGTH: 0.01 MILLIGRAM
     Route: 050
     Dates: start: 20230517, end: 20230627

REACTIONS (3)
  - Eye pain [Recovered/Resolved]
  - Iritis [Recovered/Resolved]
  - Device dislocation [Recovered/Resolved]

NARRATIVE: CASE EVENT DATE: 20230504
